FAERS Safety Report 7703197-0 (Version None)
Quarter: 2011Q3

REPORT INFORMATION
  Report Type: 
  Country: None (occurrence: None)
  Receive Date: 20110823
  Receipt Date: 20110816
  Transmission Date: 20111222
  Serious: Yes (Hospitalization)
  Sender: FDA-Public Use
  Company Number: GB-SP-2011-07107

PATIENT
  Sex: Male

DRUGS (1)
  1. IMMUCYST [Suspect]
     Indication: BLADDER CANCER
     Route: 043
     Dates: start: 20110701, end: 20110701

REACTIONS (5)
  - CHILLS [None]
  - URETHRAL INJURY [None]
  - HYPERSENSITIVITY [None]
  - TUBERCULOSIS [None]
  - VOMITING PROJECTILE [None]
